FAERS Safety Report 9075665 (Version 1)
Quarter: 2013Q1

REPORT INFORMATION
  Report Type: Report from Study
  Country: US (occurrence: US)
  Receive Date: 20130129
  Receipt Date: 20130129
  Transmission Date: 20140127
  Serious: No
  Sender: FDA-Public Use
  Company Number: US-ABBOTT-12P-163-0928714-00

PATIENT
  Age: 54 Year
  Sex: Female

DRUGS (9)
  1. HUMIRA 40 MG/0.8 ML PEN [Suspect]
     Indication: ANKYLOSING SPONDYLITIS
     Dates: start: 200201
  2. BENTYL [Concomitant]
     Indication: DIARRHOEA
     Dosage: 10MG DAILY
  3. MELOXICAM [Concomitant]
     Indication: ANKYLOSING SPONDYLITIS
     Dosage: 15MG DAILY
  4. NEXIUM [Concomitant]
     Indication: GASTROOESOPHAGEAL REFLUX DISEASE
     Dosage: 40MG DAILY
  5. LEVOTHYROXINE [Concomitant]
     Indication: HYPOTHYROIDISM
     Dosage: 150MCG DAILY
  6. HYDROCODONE [Concomitant]
     Indication: PAIN
     Dosage: 500MG/7.5 AS NEEDED
  7. HCTZ [Concomitant]
     Indication: HYPERTENSION
     Dosage: 25MG DAILY
     Dates: start: 2008
  8. GLIMEPIRIDE [Concomitant]
     Indication: DIABETES MELLITUS
     Dates: start: 2008
  9. METFORMIN [Concomitant]
     Indication: DIABETES MELLITUS
     Dates: start: 2008

REACTIONS (5)
  - Sinus congestion [Not Recovered/Not Resolved]
  - Diabetes mellitus [Unknown]
  - Hypertension [Unknown]
  - Cough [Not Recovered/Not Resolved]
  - Sputum discoloured [Not Recovered/Not Resolved]
